FAERS Safety Report 20027740 (Version 1)
Quarter: 2021Q4

REPORT INFORMATION
  Report Type: Spontaneous
  Country: US (occurrence: US)
  Receive Date: 20211103
  Receipt Date: 20211103
  Transmission Date: 20220303
  Serious: No
  Sender: FDA-Public Use
  Company Number: US-VIIV HEALTHCARE LIMITED-US2021AMR220149

PATIENT
  Age: 56 Year
  Sex: Male

DRUGS (4)
  1. RILPIVIRINE [Suspect]
     Active Substance: RILPIVIRINE
     Indication: Product used for unknown indication
     Dosage: UNK
     Route: 065
     Dates: start: 202105
  2. EDURANT [Suspect]
     Active Substance: RILPIVIRINE HYDROCHLORIDE
     Indication: Product used for unknown indication
     Dosage: UNK
     Route: 048
     Dates: start: 202104
  3. CABOTEGRAVIR [Suspect]
     Active Substance: CABOTEGRAVIR
     Indication: Product used for unknown indication
     Dosage: UNK
     Route: 048
     Dates: start: 202104
  4. CABOTEGRAVIR [Suspect]
     Active Substance: CABOTEGRAVIR
     Indication: Product used for unknown indication
     Route: 065
     Dates: start: 202105

REACTIONS (1)
  - Haemoglobin increased [Unknown]

NARRATIVE: CASE EVENT DATE: 20210101
